FAERS Safety Report 7037355-8 (Version None)
Quarter: 2010Q4

REPORT INFORMATION
  Report Type: 
  Country: None (occurrence: None)
  Receive Date: 20101011
  Receipt Date: 20100907
  Transmission Date: 20110411
  Serious: No
  Sender: FDA-Public Use
  Company Number: US-ELI_LILLY_AND_COMPANY-US201008003880

PATIENT
  Sex: Female

DRUGS (10)
  1. BYETTA [Suspect]
     Indication: TYPE 2 DIABETES MELLITUS
     Dosage: 5 UG, 2/D
     Route: 058
     Dates: start: 20100720, end: 20100726
  2. ASPIRIN [Concomitant]
     Dosage: 81 MG, UNK
     Route: 048
  3. SYNTHROID [Concomitant]
     Indication: HYPOTHYROIDISM
     Dosage: 0.1 MG, UNK
     Route: 048
  4. ELAVIL [Concomitant]
     Dosage: 25 MG, EACH EVENING
     Route: 048
  5. TOPROL-XL [Concomitant]
     Dosage: 100 MG, UNK
  6. GLUCOVANCE [Concomitant]
     Indication: TYPE 2 DIABETES MELLITUS
  7. PERCOCET [Concomitant]
     Dosage: UNK, AS NEEDED
     Route: 048
  8. ESTRADIOL [Concomitant]
     Indication: HORMONE REPLACEMENT THERAPY
     Dosage: 0.5 MG, UNK
     Route: 048
  9. CELEBREX [Concomitant]
     Indication: ARTHRITIS
     Dosage: 200 MG, DAILY (1/D)
  10. LISINOPRIL [Concomitant]
     Indication: HYPERTENSION
     Dosage: 5 MG, DAILY (1/D)

REACTIONS (2)
  - HYPOGLYCAEMIA UNAWARENESS [None]
  - PRESYNCOPE [None]
